FAERS Safety Report 18021181 (Version 1)
Quarter: 2020Q3

REPORT INFORMATION
  Report Type: Spontaneous
  Country: GB (occurrence: GB)
  Receive Date: 20200714
  Receipt Date: 20200714
  Transmission Date: 20201103
  Serious: Yes (Hospitalization)
  Sender: FDA-Public Use
  Company Number: GB-009507513-2007GBR004883

PATIENT
  Age: 27 Year
  Sex: Female
  Weight: 63 kg

DRUGS (1)
  1. NEXPLANON [Suspect]
     Active Substance: ETONOGESTREL
     Indication: CONTRACEPTION
     Dosage: UNK
     Route: 051
     Dates: start: 20190401, end: 20190701

REACTIONS (3)
  - Ovarian cyst [Recovered/Resolved]
  - Vaginal haemorrhage [Recovered/Resolved]
  - Anaemia [Recovered/Resolved]

NARRATIVE: CASE EVENT DATE: 20190401
